FAERS Safety Report 17108754 (Version 1)
Quarter: 2019Q4

REPORT INFORMATION
  Report Type: Spontaneous
  Country: GB (occurrence: GB)
  Receive Date: 20191203
  Receipt Date: 20191203
  Transmission Date: 20200122
  Serious: Yes (Life-Threatening, Hospitalization, Other)
  Sender: FDA-Public Use
  Company Number: GB-PFIZER INC-2019515519

PATIENT
  Age: 65 Year
  Sex: Male
  Weight: 107 kg

DRUGS (12)
  1. FEXOFENADINE [Concomitant]
     Active Substance: FEXOFENADINE HYDROCHLORIDE
     Dosage: UNK
  2. RANITIDINE. [Concomitant]
     Active Substance: RANITIDINE
  3. WARFARIN [Concomitant]
     Active Substance: WARFARIN
     Dosage: UNK
  4. AMITRIPTYLINE [Concomitant]
     Active Substance: AMITRIPTYLINE
     Dosage: UNK
  5. FLUCLOXACILLIN [Concomitant]
     Active Substance: FLUCLOXACILLIN
     Dosage: UNK
     Dates: start: 20191023
  6. FOLIC ACID. [Concomitant]
     Active Substance: FOLIC ACID
     Dosage: UNK
  7. BISOPROLOL [Concomitant]
     Active Substance: BISOPROLOL
     Dosage: UNK
  8. FERROUS FUMARATE [Concomitant]
     Active Substance: FERROUS FUMARATE
     Dosage: UNK
  9. METHOTREXATE SODIUM. [Suspect]
     Active Substance: METHOTREXATE SODIUM
     Indication: PSORIASIS
     Dosage: 40 MG, SINGLE
     Route: 048
     Dates: start: 201910, end: 201910
  10. METHOTREXATE SODIUM. [Suspect]
     Active Substance: METHOTREXATE SODIUM
     Dosage: 20 MG, UNK (TAKEN A WEEK APART)
     Dates: start: 201910, end: 2019
  11. ENSTILAR [Concomitant]
     Active Substance: BETAMETHASONE DIPROPIONATE\CALCIPOTRIENE HYDRATE
     Dosage: UNK
  12. MICONAZOLE. [Concomitant]
     Active Substance: MICONAZOLE
     Dosage: UNK

REACTIONS (6)
  - Mouth haemorrhage [Unknown]
  - Diarrhoea [Unknown]
  - Bone marrow failure [Not Recovered/Not Resolved]
  - Haematoma infection [Unknown]
  - Mouth ulceration [Unknown]
  - Skin disorder [Unknown]

NARRATIVE: CASE EVENT DATE: 2019
